FAERS Safety Report 13033626 (Version 1)
Quarter: 2016Q4

REPORT INFORMATION
  Report Type: Spontaneous
  Country: US (occurrence: US)
  Receive Date: 20161216
  Receipt Date: 20161216
  Transmission Date: 20170207
  Serious: Yes (Other)
  Sender: FDA-Public Use
  Company Number: US-ZYDUS-012923

PATIENT
  Age: 78 Year
  Sex: Female

DRUGS (4)
  1. LAMOTRIGINE. [Interacting]
     Active Substance: LAMOTRIGINE
     Indication: SEIZURE
     Dosage: UP TO 200 MG TWO TIMES A DAY
     Route: 065
  2. LEVETIRACETAM. [Suspect]
     Active Substance: LEVETIRACETAM
     Indication: SEIZURE
     Route: 065
  3. VALPROIC ACID. [Interacting]
     Active Substance: VALPROIC ACID
     Indication: PRODUCT USED FOR UNKNOWN INDICATION
     Route: 042
  4. VALPROIC ACID. [Interacting]
     Active Substance: VALPROIC ACID
     Indication: PRODUCT USED FOR UNKNOWN INDICATION
     Route: 065

REACTIONS (9)
  - Vision blurred [Recovering/Resolving]
  - Tremor [Recovering/Resolving]
  - Drug interaction [Recovering/Resolving]
  - Seizure [Recovering/Resolving]
  - Balance disorder [Recovering/Resolving]
  - Feeling drunk [Recovering/Resolving]
  - Ataxia [Recovering/Resolving]
  - Status epilepticus [Recovering/Resolving]
  - Nausea [Recovering/Resolving]
